FAERS Safety Report 6565958-3 (Version None)
Quarter: 2010Q1

REPORT INFORMATION
  Report Type: 
  Country: None (occurrence: None)
  Receive Date: 20100129
  Receipt Date: 20100129
  Transmission Date: 20100710
  Serious: Yes (Hospitalization)
  Sender: FDA-Public Use
  Company Number: None

PATIENT
  Sex: Female
  Weight: 65.4 kg

DRUGS (3)
  1. CYTARABINE [Suspect]
     Dosage: 13670 MG
  2. MYLOTARG [Suspect]
     Dosage: 5 MG
  3. MITOXANTRONE HYDROCHLORIDE [Suspect]
     Dosage: 80 MG

REACTIONS (2)
  - AMMONIA INCREASED [None]
  - BONE MARROW FAILURE [None]
